FAERS Safety Report 8170156-6 (Version None)
Quarter: 2012Q1

REPORT INFORMATION
  Report Type: 
  Country: None (occurrence: None)
  Receive Date: 20120228
  Receipt Date: 20120221
  Transmission Date: 20120608
  Serious: Yes (Other)
  Sender: FDA-Public Use
  Company Number: PHEH2012US000477

PATIENT
  Sex: Female
  Weight: 119.6 kg

DRUGS (5)
  1. CALCIUM [Concomitant]
     Route: 048
     Dates: start: 20110501
  2. EXJADE [Suspect]
     Indication: IRON OVERLOAD
     Dosage: 1000 MG DAILY
     Route: 048
     Dates: start: 20111212, end: 20111229
  3. LEVOTHROID [Concomitant]
     Indication: HYPOTHYROIDISM
     Dosage: 75 UG, UNK
     Route: 048
     Dates: start: 20070501
  4. CENTRUM [Concomitant]
     Indication: HYPOTHYROIDISM
     Route: 048
     Dates: start: 20070501
  5. EXJADE [Suspect]
     Indication: MYELODYSPLASTIC SYNDROME

REACTIONS (6)
  - OCULAR HYPERAEMIA [None]
  - GASTROINTESTINAL DISORDER [None]
  - EYE IRRITATION [None]
  - DIARRHOEA [None]
  - DRY EYE [None]
  - DEHYDRATION [None]
